FAERS Safety Report 23102831 (Version 1)
Quarter: 2023Q4

REPORT INFORMATION
  Report Type: Report from Study
  Country: US (occurrence: US)
  Receive Date: 20231025
  Receipt Date: 20231025
  Transmission Date: 20240109
  Serious: No
  Sender: FDA-Public Use
  Company Number: US-002147023-NVSC2023US224786

PATIENT
  Sex: Male

DRUGS (1)
  1. TRIAMCINOLONE [Suspect]
     Active Substance: TRIAMCINOLONE
     Indication: Psoriasis
     Route: 065

REACTIONS (6)
  - Psoriasis [Unknown]
  - Dermatitis psoriasiform [Unknown]
  - Pain [Unknown]
  - Skin fissures [Unknown]
  - Body surface area increased [Unknown]
  - Drug ineffective [Unknown]
